FAERS Safety Report 5094480-9 (Version None)
Quarter: 2006Q3

REPORT INFORMATION
  Report Type: 
  Country: None (occurrence: None)
  Receive Date: 20060831
  Receipt Date: 20050126
  Transmission Date: 20061208
  Serious: Yes (Death)
  Sender: FDA-Public Use
  Company Number: US-ABBOTT-05P-163-0288342-00

PATIENT
  Age: 38 Year
  Sex: Male

DRUGS (26)
  1. RITONAVIR SOFT GELATIN CAPSULES [Suspect]
     Indication: HIV INFECTION
     Route: 048
     Dates: start: 20030512, end: 20030908
  2. TIPRANAVIR [Concomitant]
     Indication: HIV INFECTION
     Route: 048
     Dates: start: 20030512, end: 20030908
  3. DIDANOSINE [Concomitant]
     Indication: HIV INFECTION
     Dates: start: 20020513
  4. TENOFOVIR [Concomitant]
     Indication: HIV INFECTION
     Dates: start: 20021002
  5. ABACAVIR [Concomitant]
     Indication: HIV INFECTION
     Dates: start: 20021002, end: 20030908
  6. ITRACONAZOLE [Concomitant]
     Indication: OESOPHAGEAL PAIN
     Dates: start: 20030729
  7. ITRACONAZOLE [Concomitant]
     Indication: FUNGAL INFECTION
     Dates: start: 20021021
  8. FLUOROURACIL [Concomitant]
     Indication: BOWEN'S DISEASE
     Dates: start: 20030121
  9. SALMETEROL XINAFOATE [Concomitant]
     Indication: ASTHMA
     Dates: start: 20020409
  10. HYDROMORPHONE HYDROCHLORIDE [Concomitant]
     Indication: CANDIDIASIS
     Dates: start: 20020521
  11. FENOFIBRATE [Concomitant]
     Indication: HYPERLIPIDAEMIA
     Dates: start: 19990519
  12. LOMOTIL [Concomitant]
     Indication: DIARRHOEA
     Dates: start: 20020704
  13. BACTRIM [Concomitant]
     Indication: ANTIBIOTIC PROPHYLAXIS
     Dates: start: 20050728
  14. PSYLLIUM HYDROPHILIC MUCILLOID [Concomitant]
     Indication: DIARRHOEA
  15. LOPERAMIDE HYDROCHLORIDE [Concomitant]
     Indication: DIARRHOEA
     Dates: start: 20020409
  16. CALCIUM GLUCONATE [Concomitant]
     Indication: MEDICAL DIET
  17. AZITHROMYCIN [Concomitant]
     Indication: ANTIBIOTIC PROPHYLAXIS
     Dates: start: 19980220
  18. NEUPOGEN [Concomitant]
     Indication: NEUTROPENIA
     Dates: start: 20011206
  19. VORICONAZOLE [Concomitant]
     Indication: FUNGAL INFECTION
     Dates: start: 20030704
  20. CASPOFUNGIN ACETATE [Concomitant]
     Indication: FUNGAL INFECTION
     Dates: start: 20021002
  21. VALGANCICLOVIR HCL [Concomitant]
     Indication: CYTOMEGALOVIRUS INFECTION
     Dates: start: 20021031
  22. POTASSIUM CHLORIDE [Concomitant]
     Indication: HYPOKALAEMIA
     Dates: start: 20030714
  23. NYSTATIN [Concomitant]
     Indication: OESOPHAGEAL PAIN
     Dates: start: 20031013
  24. OXAZEPAM [Concomitant]
     Indication: INSOMNIA
     Dates: start: 20031007
  25. MICAFUNGIN [Concomitant]
     Indication: CANDIDIASIS
     Dates: start: 20030909
  26. PANTOPRAZOLE SODIUM [Concomitant]
     Indication: OESOPHAGEAL PAIN
     Dates: start: 20030804

REACTIONS (2)
  - DEATH [None]
  - DRUG INEFFECTIVE [None]
